FAERS Safety Report 6025849-3 (Version None)
Quarter: 2008Q4

REPORT INFORMATION
  Report Type: 
  Country: None (occurrence: None)
  Receive Date: 20081224
  Receipt Date: 20081212
  Transmission Date: 20090506
  Serious: Yes (Other)
  Sender: FDA-Public Use
  Company Number: 2008AP003420

PATIENT
  Sex: Female

DRUGS (1)
  1. PRAVASTATIN SODIUM [Suspect]
     Dosage: 20 MG;QD;PO
     Route: 048
     Dates: start: 20080828, end: 20081205

REACTIONS (2)
  - LIMB DISCOMFORT [None]
  - MUSCULAR WEAKNESS [None]
